FAERS Safety Report 7511234-1 (Version None)
Quarter: 2011Q2

REPORT INFORMATION
  Report Type: 
  Country: None (occurrence: None)
  Receive Date: 20110531
  Receipt Date: 20110525
  Transmission Date: 20111010
  Serious: Yes (Death, Other)
  Sender: FDA-Public Use
  Company Number: PHHY2011JP43051

PATIENT
  Age: 58 Year
  Sex: Male

DRUGS (3)
  1. METHOTREXATE [Concomitant]
     Indication: BONE MARROW TRANSPLANT
     Dosage: UNK
  2. THROMBOMODULIN ALFA [Concomitant]
     Indication: VENOOCCLUSIVE LIVER DISEASE
     Dosage: UNK
  3. CYCLOSPORINE [Suspect]
     Indication: BONE MARROW TRANSPLANT
     Dosage: UNK

REACTIONS (13)
  - ASCITES [None]
  - BILIRUBIN CONJUGATED INCREASED [None]
  - HEPATIC FAILURE [None]
  - SYSTEMIC CANDIDA [None]
  - THROMBOTIC MICROANGIOPATHY [None]
  - NEUTROPHIL COUNT INCREASED [None]
  - PLEURAL EFFUSION [None]
  - CYTOMEGALOVIRUS TEST POSITIVE [None]
  - VENOOCCLUSIVE LIVER DISEASE [None]
  - WEIGHT INCREASED [None]
  - JAUNDICE [None]
  - HISTIOCYTOSIS HAEMATOPHAGIC [None]
  - HEPATIC FUNCTION ABNORMAL [None]
